FAERS Safety Report 4570337-4 (Version None)
Quarter: 2005Q1

REPORT INFORMATION
  Report Type: 
  Country: None (occurrence: None)
  Receive Date: 20050204
  Receipt Date: 20050112
  Transmission Date: 20050727
  Serious: Yes (Hospitalization)
  Sender: FDA-Public Use
  Company Number: IT-ROCHE-392111

PATIENT
  Age: 81 Year
  Sex: Female

DRUGS (3)
  1. TICLID [Suspect]
     Indication: TRANSIENT ISCHAEMIC ATTACK
     Route: 048
     Dates: start: 20041030, end: 20041220
  2. ANTIHYPERTENSIVE [Concomitant]
     Indication: HYPERTENSION
     Route: 048
  3. ANTIDIABETIC DRUG NOS [Concomitant]
     Route: 065

REACTIONS (6)
  - GRANULOCYTOPENIA [None]
  - PANCYTOPENIA [None]
  - PLATELET COUNT DECREASED [None]
  - PNEUMONIA [None]
  - PYREXIA [None]
  - SEPSIS [None]
